FAERS Safety Report 24018221 (Version 1)
Quarter: 2024Q2

REPORT INFORMATION
  Report Type: Spontaneous
  Country: US (occurrence: US)
  Receive Date: 20240627
  Receipt Date: 20240627
  Transmission Date: 20240715
  Serious: No
  Sender: FDA-Public Use
  Company Number: US-HALEON-2184047

PATIENT
  Sex: Female

DRUGS (1)
  1. ABREVA [Suspect]
     Active Substance: DOCOSANOL
     Indication: Product used for unknown indication
     Dosage: EXPDATE:20260131
     Dates: start: 20240620

REACTIONS (3)
  - Lip discolouration [Not Recovered/Not Resolved]
  - Drug ineffective [Unknown]
  - Lip pruritus [Not Recovered/Not Resolved]

NARRATIVE: CASE EVENT DATE: 20240623
